FAERS Safety Report 7218207-7 (Version None)
Quarter: 2011Q1

REPORT INFORMATION
  Report Type: 
  Country: None (occurrence: None)
  Receive Date: 20110110
  Receipt Date: 20110105
  Transmission Date: 20110831
  Serious: Yes (Hospitalization)
  Sender: FDA-Public Use
  Company Number: BR-B.I. PHARMACEUTICALS,INC./RIDGEFIELD-2011-BR-00026BR

PATIENT
  Sex: Female

DRUGS (6)
  1. MOVATEC AMPOULES [Suspect]
     Indication: OSTEOARTHRITIS
     Dosage: 15 MG
     Route: 030
     Dates: start: 20101207, end: 20101207
  2. MOVATEC AMPOULES [Suspect]
     Indication: BONE PAIN
  3. MOVATEC AMPOULES [Suspect]
     Indication: INTERVERTEBRAL DISC PROTRUSION
  4. MEDICATION NOT FURTHER SPECIFIED [Concomitant]
  5. SINERGEN [Concomitant]
     Indication: BLOOD PRESSURE
  6. RANITIDINE HCL [Concomitant]

REACTIONS (4)
  - CARDIAC DISORDER [None]
  - ARRHYTHMIA [None]
  - DYSPNOEA [None]
  - LUNG DISORDER [None]
